FAERS Safety Report 8767087 (Version 3)
Quarter: 2012Q4

REPORT INFORMATION
  Report Type: 
  Country: JP (occurrence: JP)
  Receive Date: 20120903
  Receipt Date: 20121227
  Transmission Date: 20130627
  Serious: Yes (Hospitalization)
  Sender: FDA-Public Use
  Company Number: JP-ELI_LILLY_AND_COMPANY-JP201208007028

PATIENT
  Age: 79 Year
  Sex: Female

DRUGS (10)
  1. ZYPREXA [Suspect]
     Indication: BEHAVIOURAL AND PSYCHIATRIC SYMPTOMS OF DEMENTIA
     Dosage: 2.5 mg, bid
     Route: 048
     Dates: start: 20120215, end: 20120705
  2. CORINAEL L [Concomitant]
     Indication: HYPERTENSION
     Dosage: UNK
     Route: 048
     Dates: start: 20120215, end: 20120705
  3. PHENYTOIN [Concomitant]
     Indication: EPILEPSY
     Dosage: UNK
     Route: 048
     Dates: start: 20120215, end: 20120705
  4. LANDSEN [Concomitant]
     Indication: EPILEPSY
     Dosage: UNK
     Route: 048
     Dates: start: 20120215, end: 20120705
  5. MAGNESIUM OXIDE [Concomitant]
     Indication: CONSTIPATION
     Dosage: UNK
     Route: 048
     Dates: start: 20120215, end: 20120705
  6. FUROSEMIDE [Concomitant]
     Dosage: UNK
     Route: 048
     Dates: start: 20120308, end: 20120705
  7. ASCATE [Concomitant]
     Indication: MINERAL SUPPLEMENTATION
     Dosage: UNK
     Route: 048
     Dates: start: 20120308, end: 20120705
  8. HALRACK [Concomitant]
     Dosage: 0.25 mg, qd
     Route: 048
     Dates: start: 20120215, end: 20120705
  9. FEROTYM [Concomitant]
     Dosage: UNK
     Route: 048
     Dates: start: 20120220, end: 20120705
  10. YOKUKAN-SAN [Concomitant]
     Dosage: 2.5 g, tid
     Route: 048
     Dates: start: 20120220, end: 20120705

REACTIONS (4)
  - Anaemia [Recovered/Resolved]
  - White blood cell count decreased [Recovered/Resolved]
  - Dysuria [Recovering/Resolving]
  - Off label use [Recovered/Resolved]
